FAERS Safety Report 8595359-8 (Version None)
Quarter: 2012Q3

REPORT INFORMATION
  Report Type: 
  Country: None (occurrence: None)
  Receive Date: 20120815
  Receipt Date: 20120804
  Transmission Date: 20120928
  Serious: No
  Sender: FDA-Public Use
  Company Number: US-BAYER-2012-079821

PATIENT
  Age: 63 Year
  Sex: Female
  Weight: 96.599 kg

DRUGS (3)
  1. ALEVE (CAPLET) [Suspect]
     Indication: BACK PAIN
     Dosage: 2 DF, BID
     Route: 048
     Dates: start: 20120801
  2. BLOOD PRESSURE MEDICATION (NOS) [Concomitant]
  3. PRILOSEC [Concomitant]

REACTIONS (1)
  - GASTROOESOPHAGEAL REFLUX DISEASE [None]
